FAERS Safety Report 10139057 (Version 2)
Quarter: 2015Q1

REPORT INFORMATION
  Report Type: Other
  Country: US (occurrence: US)
  Receive Date: 20140429
  Receipt Date: 20150218
  Transmission Date: 20150720
  Serious: Yes (Death, Hospitalization, Other)
  Sender: FDA-Public Use
  Company Number: US-GSKPPD-2014GSK040254

PATIENT
  Age: 55 Year
  Sex: Male

DRUGS (7)
  1. HYDRALAZINE [Concomitant]
     Active Substance: HYDRALAZINE HYDROCHLORIDE
  2. ZAROXOLYN [Concomitant]
     Active Substance: METOLAZONE
  3. AVANDIA [Suspect]
     Active Substance: ROSIGLITAZONE MALEATE
     Indication: DIABETES MELLITUS
     Dosage: AVANDIA WAS NOT LISTED AMONG THE PATIENTS RECORDS REVIEWED.
     Route: 048
  4. AMIODARONE [Concomitant]
     Active Substance: AMIODARONE
  5. LANOXIN [Concomitant]
     Active Substance: DIGOXIN
     Dosage: MONDAY, WEDNESDAY, FRIDAY
  6. IMDUR [Concomitant]
     Active Substance: ISOSORBIDE MONONITRATE
  7. COREG [Concomitant]
     Active Substance: CARVEDILOL

REACTIONS (4)
  - Cardiac arrest [Fatal]
  - Cardiac failure congestive [Recovered/Resolved]
  - Cerebrovascular accident [Unknown]
  - Coronary artery disease [Not Recovered/Not Resolved]

NARRATIVE: CASE EVENT DATE: 20060409
